FAERS Safety Report 8799898 (Version 2)
Quarter: 2013Q4

REPORT INFORMATION
  Report Type: Spontaneous
  Country: US (occurrence: US)
  Receive Date: 20120919
  Receipt Date: 20131105
  Transmission Date: 20140711
  Serious: Yes (Other)
  Sender: FDA-Public Use
  Company Number: US-009507513-1209USA005775

PATIENT
  Age: 32 Year
  Sex: Male

DRUGS (3)
  1. SAPHRIS [Suspect]
  2. SEROQUEL [Suspect]
     Route: 048
  3. GEODON [Suspect]

REACTIONS (2)
  - Vision blurred [Unknown]
  - Weight increased [Unknown]
